FAERS Safety Report 5152277-5 (Version None)
Quarter: 2006Q4

REPORT INFORMATION
  Report Type: 
  Country: None (occurrence: None)
  Receive Date: 20061116
  Receipt Date: 20061109
  Transmission Date: 20070319
  Serious: Yes (Other)
  Sender: FDA-Public Use
  Company Number: JP-MERCK-0611USA04218

PATIENT
  Age: 86 Year
  Sex: Female

DRUGS (1)
  1. FOSAMAX [Suspect]
     Indication: OSTEOPOROSIS
     Route: 048
     Dates: start: 20061001

REACTIONS (4)
  - ANXIETY [None]
  - DELUSION [None]
  - DEMENTIA [None]
  - SOMNOLENCE [None]
